FAERS Safety Report 6999980-X (Version None)
Quarter: 2010Q3

REPORT INFORMATION
  Report Type: 
  Country: None (occurrence: None)
  Receive Date: 20100920
  Receipt Date: 20090917
  Transmission Date: 20110219
  Serious: Yes (Other)
  Sender: FDA-Public Use
  Company Number: US-ASTRAZENECA-2007UW11008

PATIENT
  Age: 13771 Day
  Sex: Female
  Weight: 59 kg

DRUGS (60)
  1. SEROQUEL [Suspect]
     Indication: SLEEP DISORDER
     Dosage: 250-800 MG
     Route: 048
     Dates: start: 19990803
  2. SEROQUEL [Suspect]
     Indication: INSOMNIA
     Dosage: 250-800 MG
     Route: 048
     Dates: start: 19990803
  3. SEROQUEL [Suspect]
     Indication: BIPOLAR DISORDER
     Dosage: 250-800 MG
     Route: 048
     Dates: start: 19990803
  4. SEROQUEL [Suspect]
     Indication: DEPRESSION
     Dosage: 250-800 MG
     Route: 048
     Dates: start: 19990803
  5. SEROQUEL [Suspect]
     Indication: ANXIETY
     Dosage: 250-800 MG
     Route: 048
     Dates: start: 19990803
  6. SEROQUEL [Suspect]
     Indication: POST-TRAUMATIC STRESS DISORDER
     Dosage: 250-800 MG
     Route: 048
     Dates: start: 19990803
  7. SEROQUEL [Suspect]
     Route: 048
     Dates: start: 19990803, end: 19990811
  8. SEROQUEL [Suspect]
     Route: 048
     Dates: start: 19990803, end: 19990811
  9. SEROQUEL [Suspect]
     Route: 048
     Dates: start: 19990803, end: 19990811
  10. SEROQUEL [Suspect]
     Route: 048
     Dates: start: 19990803, end: 19990811
  11. SEROQUEL [Suspect]
     Route: 048
     Dates: start: 19990803, end: 19990811
  12. SEROQUEL [Suspect]
     Route: 048
     Dates: start: 19990803, end: 19990811
  13. SEROQUEL [Suspect]
     Dosage: 400-500 MG
     Route: 048
     Dates: start: 20010828, end: 20030514
  14. SEROQUEL [Suspect]
     Dosage: 400-500 MG
     Route: 048
     Dates: start: 20010828, end: 20030514
  15. SEROQUEL [Suspect]
     Dosage: 400-500 MG
     Route: 048
     Dates: start: 20010828, end: 20030514
  16. SEROQUEL [Suspect]
     Dosage: 400-500 MG
     Route: 048
     Dates: start: 20010828, end: 20030514
  17. SEROQUEL [Suspect]
     Dosage: 400-500 MG
     Route: 048
     Dates: start: 20010828, end: 20030514
  18. SEROQUEL [Suspect]
     Dosage: 400-500 MG
     Route: 048
     Dates: start: 20010828, end: 20030514
  19. SEROQUEL [Suspect]
     Route: 048
     Dates: start: 20030523, end: 20040225
  20. SEROQUEL [Suspect]
     Route: 048
     Dates: start: 20030523, end: 20040225
  21. SEROQUEL [Suspect]
     Route: 048
     Dates: start: 20030523, end: 20040225
  22. SEROQUEL [Suspect]
     Route: 048
     Dates: start: 20030523, end: 20040225
  23. SEROQUEL [Suspect]
     Route: 048
     Dates: start: 20030523, end: 20040225
  24. SEROQUEL [Suspect]
     Route: 048
     Dates: start: 20030523, end: 20040225
  25. SEROQUEL [Suspect]
     Dosage: 200-300 MG
     Route: 048
     Dates: start: 20040227, end: 20060622
  26. SEROQUEL [Suspect]
     Dosage: 200-300 MG
     Route: 048
     Dates: start: 20040227, end: 20060622
  27. SEROQUEL [Suspect]
     Dosage: 200-300 MG
     Route: 048
     Dates: start: 20040227, end: 20060622
  28. SEROQUEL [Suspect]
     Dosage: 200-300 MG
     Route: 048
     Dates: start: 20040227, end: 20060622
  29. SEROQUEL [Suspect]
     Dosage: 200-300 MG
     Route: 048
     Dates: start: 20040227, end: 20060622
  30. SEROQUEL [Suspect]
     Dosage: 200-300 MG
     Route: 048
     Dates: start: 20040227, end: 20060622
  31. SEROQUEL [Suspect]
     Dosage: 400-600 MG
     Route: 048
     Dates: start: 20060628, end: 20070906
  32. SEROQUEL [Suspect]
     Dosage: 400-600 MG
     Route: 048
     Dates: start: 20060628, end: 20070906
  33. SEROQUEL [Suspect]
     Dosage: 400-600 MG
     Route: 048
     Dates: start: 20060628, end: 20070906
  34. SEROQUEL [Suspect]
     Dosage: 400-600 MG
     Route: 048
     Dates: start: 20060628, end: 20070906
  35. SEROQUEL [Suspect]
     Dosage: 400-600 MG
     Route: 048
     Dates: start: 20060628, end: 20070906
  36. SEROQUEL [Suspect]
     Dosage: 400-600 MG
     Route: 048
     Dates: start: 20060628, end: 20070906
  37. CLONAZEPAM [Concomitant]
     Indication: ANXIETY
     Dosage: 0.5-2 MG
     Route: 048
     Dates: start: 19921125
  38. OMEPRAZOLE [Concomitant]
     Indication: GASTROOESOPHAGEAL REFLUX DISEASE
     Route: 048
     Dates: start: 19980319
  39. VENLAFAXINE [Concomitant]
     Dosage: 225-300 MG
     Route: 048
     Dates: start: 19960121
  40. TRAZODONE HCL [Concomitant]
     Dosage: 100-300 MG
     Route: 048
     Dates: start: 19950721
  41. RISPERDAL [Concomitant]
     Indication: INSOMNIA
     Dosage: 1-4 MG
  42. RISPERDAL [Concomitant]
     Indication: POST-TRAUMATIC STRESS DISORDER
     Dosage: 1-4 MG
  43. RISPERDAL [Concomitant]
     Indication: BIPOLAR DISORDER
     Dosage: 1-4 MG
  44. RISPERDAL [Concomitant]
     Indication: DEPRESSION
     Dosage: 1-4 MG
  45. ZYPREXA [Concomitant]
     Indication: BIPOLAR DISORDER
  46. ZYPREXA [Concomitant]
     Indication: INSOMNIA
  47. ZYPREXA [Concomitant]
     Indication: POST-TRAUMATIC STRESS DISORDER
  48. ABILIFY [Concomitant]
     Dates: start: 20080101
  49. GEODON [Concomitant]
  50. HALDOL [Concomitant]
     Dates: start: 19800101
  51. LITHIUM [Concomitant]
  52. NEURONTIN [Concomitant]
  53. TOPAMAX [Concomitant]
  54. SERTRALINE HYDROCHLORIDE [Concomitant]
  55. PROZAC [Concomitant]
  56. AMITRIPTYLINE HCL [Concomitant]
  57. KLONOPIN [Concomitant]
  58. ATIVAN [Concomitant]
  59. AMBIEN [Concomitant]
  60. CYMBALTA [Concomitant]

REACTIONS (4)
  - DIABETES MELLITUS INADEQUATE CONTROL [None]
  - TARDIVE DYSKINESIA [None]
  - TYPE 1 DIABETES MELLITUS [None]
  - TYPE 2 DIABETES MELLITUS [None]
